FAERS Safety Report 4454716-1 (Version None)
Quarter: 2004Q3

REPORT INFORMATION
  Report Type: 
  Country: None (occurrence: None)
  Receive Date: 20040920
  Receipt Date: 20040920
  Transmission Date: 20050211
  Serious: Yes (Life-Threatening)
  Sender: FDA-Public Use
  Company Number: None

PATIENT
  Age: 79 Year
  Sex: Male
  Weight: 91.5 kg

DRUGS (4)
  1. MIDAZOLAM  1 MG/ 1 ML [Suspect]
     Indication: POSTOPERATIVE ANALGESIA
     Dosage: 2 MG X1  INTRAVENOUS
     Route: 042
     Dates: start: 20040916, end: 20040916
  2. MORPHINE [Suspect]
     Indication: POSTOPERATIVE ANALGESIA
     Dosage: 2 MG X 1  INTRAVENOUS
     Route: 042
     Dates: start: 20040916, end: 20040916
  3. EPIDURAL DRIP BUPIVICAINE [Concomitant]
  4. FENTANYL [Concomitant]

REACTIONS (5)
  - BLOOD PRESSURE DECREASED [None]
  - COMA [None]
  - HYPERHIDROSIS [None]
  - MIOSIS [None]
  - POST PROCEDURAL COMPLICATION [None]
